FAERS Safety Report 5762891-1 (Version None)
Quarter: 2008Q2

REPORT INFORMATION
  Report Type: 
  Country: None (occurrence: None)
  Receive Date: 20080609
  Receipt Date: 20080604
  Transmission Date: 20081010
  Serious: Yes (Hospitalization)
  Sender: FDA-Public Use
  Company Number: US-ASTRAZENECA-2008UW07895

PATIENT
  Age: 85 Year
  Sex: Female

DRUGS (9)
  1. NEXIUM [Suspect]
     Indication: GASTROOESOPHAGEAL REFLUX DISEASE
  2. COUMADIN [Concomitant]
  3. CARDIZEM LA [Concomitant]
  4. DIGITEK [Concomitant]
  5. BENICAR HCT [Concomitant]
  6. SYNTHROID [Concomitant]
  7. CLONAZEPAM [Concomitant]
  8. GLUCOSAMINE [Concomitant]
  9. VITAMINS [Concomitant]

REACTIONS (4)
  - DEHYDRATION [None]
  - DYSGEUSIA [None]
  - NAUSEA [None]
  - VOMITING [None]
